FAERS Safety Report 22379484 (Version 1)
Quarter: 2023Q2

REPORT INFORMATION
  Report Type: Other
  Country: HK (occurrence: HK)
  Receive Date: 20230529
  Receipt Date: 20230529
  Transmission Date: 20230722
  Serious: Yes (Hospitalization, Other)
  Sender: FDA-Public Use
  Company Number: HK-Bion-011626

PATIENT
  Age: 14 Year
  Sex: Male

DRUGS (4)
  1. CLOBAZAM [Suspect]
     Active Substance: CLOBAZAM
     Indication: Epilepsy
  2. BACLOFEN [Concomitant]
     Active Substance: BACLOFEN
     Indication: Movement disorder
  3. TETRABENAZINE [Concomitant]
     Active Substance: TETRABENAZINE
     Indication: Movement disorder
  4. CARBAMAZEPINE [Concomitant]
     Active Substance: CARBAMAZEPINE
     Indication: Epilepsy

REACTIONS (8)
  - Sedation complication [Recovered/Resolved]
  - Hypoventilation [Recovering/Resolving]
  - Respiratory failure [Recovering/Resolving]
  - Rhabdomyolysis [Recovering/Resolving]
  - Acute kidney injury [Recovered/Resolved]
  - Hypotension [Recovering/Resolving]
  - Hyperphosphataemia [Recovering/Resolving]
  - Metabolic acidosis [Recovering/Resolving]
